FAERS Safety Report 8518734-6 (Version None)
Quarter: 2012Q3

REPORT INFORMATION
  Report Type: 
  Country: None (occurrence: None)
  Receive Date: 20120718
  Receipt Date: 20120706
  Transmission Date: 20120928
  Serious: Yes (Hospitalization, Other)
  Sender: FDA-Public Use
  Company Number: PHHY2011FR40555

PATIENT
  Sex: Female
  Weight: 63 kg

DRUGS (3)
  1. TASIGNA [Suspect]
     Indication: CHRONIC MYELOID LEUKAEMIA
     Dosage: 400 MG, BID
     Route: 048
     Dates: start: 20070425, end: 20080528
  2. TASIGNA [Suspect]
     Dosage: 400 MG, DAILY
     Route: 048
     Dates: end: 20120124
  3. ALDACTONE [Concomitant]
     Indication: HYPERTENSION
     Dates: start: 20060501

REACTIONS (15)
  - PAIN IN EXTREMITY [None]
  - PERIPHERAL ARTERIAL OCCLUSIVE DISEASE [None]
  - HYPOGLYCAEMIA [None]
  - PERIPHERAL ISCHAEMIA [None]
  - ARTERIOSCLEROSIS [None]
  - ARTERIAL THROMBOSIS LIMB [None]
  - INTERMITTENT CLAUDICATION [None]
  - ARTERIAL STENOSIS LIMB [None]
  - BASEDOW'S DISEASE [None]
  - CONDITION AGGRAVATED [None]
  - ARTERIAL OCCLUSIVE DISEASE [None]
  - FEMORAL ARTERIAL STENOSIS [None]
  - DEVICE OCCLUSION [None]
  - HYPERCHOLESTEROLAEMIA [None]
  - SKIN CHAPPED [None]
